FAERS Safety Report 6785805-4 (Version None)
Quarter: 2010Q2

REPORT INFORMATION
  Report Type: 
  Country: None (occurrence: None)
  Receive Date: 20100622
  Receipt Date: 20100622
  Transmission Date: 20101027
  Serious: Yes (Hospitalization)
  Sender: FDA-Public Use
  Company Number: None

PATIENT
  Age: 61 Year
  Sex: Male
  Weight: 93.3 kg

DRUGS (11)
  1. COUMADIN [Suspect]
     Indication: JUGULAR VEIN THROMBOSIS
     Dosage: 7.5MG DAILY PO CHRONIC
     Route: 048
  2. PREDNISONE [Concomitant]
  3. PERCOCET [Concomitant]
  4. LOMOTIL [Concomitant]
  5. TUMS [Concomitant]
  6. CIPRO [Concomitant]
  7. CELEXA [Concomitant]
  8. CODEINE SUL TAB [Concomitant]
  9. VIT B12 [Concomitant]
  10. BENADRYL [Concomitant]
  11. ATIVAN [Concomitant]

REACTIONS (4)
  - ABDOMINAL PAIN [None]
  - INTERNATIONAL NORMALISED RATIO INCREASED [None]
  - LABORATORY TEST ABNORMAL [None]
  - POST PROCEDURAL HAEMORRHAGE [None]
